FAERS Safety Report 11233426 (Version 1)
Quarter: 2015Q3

REPORT INFORMATION
  Report Type: Spontaneous
  Country: GB (occurrence: GB)
  Receive Date: 20150702
  Receipt Date: 20150702
  Transmission Date: 20151125
  Serious: Yes (Death, Hospitalization)
  Sender: FDA-Public Use
  Company Number: GB-009507513-1506GBR014123

PATIENT
  Age: 40 Year
  Sex: Male

DRUGS (40)
  1. MIRTAZAPINE. [Suspect]
     Active Substance: MIRTAZAPINE
     Indication: PRODUCT USED FOR UNKNOWN INDICATION
     Dates: start: 20140522
  2. LIORESAL [Suspect]
     Active Substance: BACLOFEN
     Dosage: 207 MICROGRAM, QD
     Route: 037
  3. LIORESAL [Suspect]
     Active Substance: BACLOFEN
     Dosage: 249.98 MICROGRAM, QD
     Route: 037
     Dates: start: 20140226, end: 20140310
  4. LIORESAL [Suspect]
     Active Substance: BACLOFEN
     Dosage: 227.52 MICROGRAM, QD
     Route: 037
     Dates: start: 20140225, end: 20140225
  5. LIORESAL [Suspect]
     Active Substance: BACLOFEN
     Dosage: 249.98 MICROGRAM, QD
     Route: 037
     Dates: start: 20140226, end: 20140310
  6. LIORESAL [Suspect]
     Active Substance: BACLOFEN
     Dosage: 207.44 MICROGRAM, QD
     Route: 037
     Dates: start: 20140123, end: 20140127
  7. RAMIPRIL. [Suspect]
     Active Substance: RAMIPRIL
     Indication: HYPERTENSION
     Route: 048
     Dates: start: 20140113
  8. SILDENAFIL CITRATE. [Suspect]
     Active Substance: SILDENAFIL CITRATE
     Indication: ERECTILE DYSFUNCTION
     Route: 048
     Dates: start: 20130220
  9. ZOPICLONE [Suspect]
     Active Substance: ZOPICLONE
     Indication: INSOMNIA
     Route: 048
     Dates: start: 20130220
  10. ACETAMINOPHEN (+) DIHYDROCODEINE BITARTRATE [Suspect]
     Active Substance: ACETAMINOPHEN\DIHYDROCODEINE BITARTRATE
     Indication: ANALGESIC THERAPY
     Route: 048
     Dates: start: 20140109
  11. LIORESAL [Suspect]
     Active Substance: BACLOFEN
     Indication: CEREBROVASCULAR ACCIDENT
     Dosage: UNK
     Route: 037
     Dates: start: 20140120
  12. LIORESAL [Suspect]
     Active Substance: BACLOFEN
     Dosage: 100 MICROGRAM, QD
     Route: 037
     Dates: start: 20140117, end: 20140119
  13. SERTRALINE HYDROCHLORIDE. [Suspect]
     Active Substance: SERTRALINE HYDROCHLORIDE
     Indication: DEPRESSION
     Route: 048
     Dates: start: 20121210, end: 20140101
  14. VENLAFAXINE HYDROCHLORIDE. [Suspect]
     Active Substance: VENLAFAXINE HYDROCHLORIDE
     Indication: DEPRESSION
     Route: 048
     Dates: start: 20140226
  15. IBUPROFEN. [Suspect]
     Active Substance: IBUPROFEN
     Indication: ANALGESIC THERAPY
     Route: 048
     Dates: start: 20140109
  16. LIORESAL [Suspect]
     Active Substance: BACLOFEN
     Dosage: 248.72 MICROGRAM, QD
     Route: 037
     Dates: start: 20140204, end: 20140206
  17. LIORESAL [Suspect]
     Active Substance: BACLOFEN
     Dosage: 172.03 MICROGRAM, QD
     Route: 037
     Dates: start: 20140122, end: 20140122
  18. LIORESAL [Suspect]
     Active Substance: BACLOFEN
     Dosage: 274.29 MICROGRAM, QD
     Route: 037
     Dates: start: 20140311
  19. LIORESAL [Suspect]
     Active Substance: BACLOFEN
     Dosage: 248.72 MICROGRAM, QD
     Route: 037
     Dates: start: 20140204, end: 20140206
  20. LIORESAL [Suspect]
     Active Substance: BACLOFEN
     Dosage: 297.42 MICROGRAM, QD
     Route: 037
     Dates: start: 20140121, end: 20140203
  21. LIORESAL [Suspect]
     Active Substance: BACLOFEN
     Dosage: 207.44 MICROGRAM, QD
     Route: 037
     Dates: start: 20140207, end: 20140224
  22. LIORESAL [Suspect]
     Active Substance: BACLOFEN
     Dosage: 248.72 MICROGRAM, QD
     Route: 037
     Dates: start: 20140128, end: 20140130
  23. LIORESAL [Suspect]
     Active Substance: BACLOFEN
     Dosage: 143.94 MICROGRAM, QD
     Route: 037
     Dates: start: 20140121, end: 20140121
  24. LIORESAL [Suspect]
     Active Substance: BACLOFEN
     Dosage: 143.94 MICROGRAM, QD
     Route: 037
     Dates: start: 20140121, end: 20140121
  25. AMLODIPINE [Suspect]
     Active Substance: AMLODIPINE BESYLATE
     Indication: HYPERTENSION
     Route: 048
     Dates: start: 20120705
  26. LIORESAL [Suspect]
     Active Substance: BACLOFEN
     Indication: MUSCLE SPASTICITY
     Dosage: 100 MICROGRAM, QD
     Route: 037
     Dates: start: 20140117, end: 20140119
  27. LIORESAL [Suspect]
     Active Substance: BACLOFEN
     Dosage: 274.29 MICROGRAM, QD
     Route: 037
     Dates: start: 20140311
  28. LIORESAL [Suspect]
     Active Substance: BACLOFEN
     Dosage: 120.13 MICROGRAM, QD
     Route: 037
     Dates: start: 20140120, end: 20140120
  29. LIORESAL [Suspect]
     Active Substance: BACLOFEN
     Dosage: 248.72 MICROGRAM, QD
     Route: 037
     Dates: start: 20140128, end: 20140130
  30. LIORESAL [Suspect]
     Active Substance: BACLOFEN
     Dosage: 120.13 MICROGRAM, QD
     Route: 037
     Dates: start: 20140120, end: 20140120
  31. BACLOFEN. [Suspect]
     Active Substance: BACLOFEN
     Indication: MUSCLE SPASTICITY
     Dosage: 60 MG, UNK
     Route: 048
     Dates: start: 20120801, end: 20140120
  32. LIORESAL [Suspect]
     Active Substance: BACLOFEN
     Dosage: 207.44 MICROGRAM, QD
     Route: 037
     Dates: start: 20140123, end: 20140127
  33. LIORESAL [Suspect]
     Active Substance: BACLOFEN
     Dosage: 297.42 MICROGRAM, QD
     Route: 037
     Dates: start: 20140121, end: 20140203
  34. BACLOFEN. [Suspect]
     Active Substance: BACLOFEN
     Indication: CEREBROVASCULAR ACCIDENT
     Dosage: 60 MG, UNK
     Route: 048
     Dates: start: 20120801, end: 20140120
  35. LIORESAL [Suspect]
     Active Substance: BACLOFEN
     Dosage: 227.52 MICROGRAM, QD
     Route: 037
     Dates: start: 20140225, end: 20140225
  36. LIORESAL [Suspect]
     Active Substance: BACLOFEN
     Dosage: UNK
     Route: 037
     Dates: start: 20140120
  37. LIORESAL [Suspect]
     Active Substance: BACLOFEN
     Dosage: 172.03 MICROGRAM, QD
     Route: 037
     Dates: start: 20140122, end: 20140122
  38. LIORESAL [Suspect]
     Active Substance: BACLOFEN
     Dosage: 207.44 MICROGRAM, QD
     Route: 037
     Dates: start: 20140207, end: 20140224
  39. METOPROLOL [Suspect]
     Active Substance: METOPROLOL
     Indication: HYPERTENSION
     Route: 048
     Dates: start: 20120705
  40. ACETAMINOPHEN. [Suspect]
     Active Substance: ACETAMINOPHEN
     Indication: ANALGESIC THERAPY
     Route: 048
     Dates: start: 20121112

REACTIONS (32)
  - Condition aggravated [Fatal]
  - Onychomycosis [Fatal]
  - Pulmonary oedema [Fatal]
  - Implant site extravasation [Fatal]
  - Sudden death [None]
  - Alcohol poisoning [Fatal]
  - Fall [Fatal]
  - Pain in extremity [Fatal]
  - Blood ethanol increased [Fatal]
  - Hepatic steatosis [Fatal]
  - Petechiae [Fatal]
  - Implant site extravasation [None]
  - Wound infection [None]
  - Toxicity to various agents [Fatal]
  - Depression [Fatal]
  - Anxiety [Fatal]
  - Insomnia [Fatal]
  - Purulent discharge [Fatal]
  - Cardiomegaly [Fatal]
  - Neutrophil count increased [Fatal]
  - Scratch [Fatal]
  - Self injurious behaviour [Fatal]
  - Erectile dysfunction [Fatal]
  - Stress [Fatal]
  - Mental disorder [Fatal]
  - Scar [Fatal]
  - Pain [Fatal]
  - Conjunctival hyperaemia [Fatal]
  - Macrophages increased [Fatal]
  - Implant site infection [Fatal]
  - Pulmonary congestion [Fatal]
  - Wound dehiscence [Fatal]
